FAERS Safety Report 6914124-8 (Version None)
Quarter: 2010Q3

REPORT INFORMATION
  Report Type: 
  Country: None (occurrence: None)
  Receive Date: 20100809
  Receipt Date: 20100729
  Transmission Date: 20110219
  Serious: Yes (Hospitalization)
  Sender: FDA-Public Use
  Company Number: SE-ASTRAZENECA-2010SE35461

PATIENT
  Age: 46 Year
  Sex: Female

DRUGS (5)
  1. SELOKEN ZOC [Suspect]
     Indication: HYPERTONIA
     Route: 048
     Dates: end: 20100501
  2. AMLODIPINE [Suspect]
     Indication: HYPERTONIA
     Route: 048
     Dates: end: 20100501
  3. ALFADIL [Suspect]
     Indication: HYPERTONIA
     Route: 048
  4. SIMVASTATIN [Concomitant]
  5. NOVORAPID [Concomitant]

REACTIONS (1)
  - ORTHOSTATIC HYPOTENSION [None]
